FAERS Safety Report 20174125 (Version 1)
Quarter: 2021Q4

REPORT INFORMATION
  Report Type: Spontaneous
  Country: CN (occurrence: CN)
  Receive Date: 20211213
  Receipt Date: 20211213
  Transmission Date: 20220303
  Serious: Yes (Other)
  Sender: FDA-Public Use
  Company Number: None

PATIENT
  Age: 76 Year
  Sex: Female
  Weight: 55 kg

DRUGS (1)
  1. NOVOLIN R [Suspect]
     Active Substance: INSULIN HUMAN
     Indication: Type 2 diabetes mellitus
     Dosage: 1 IU, QD
     Route: 058
     Dates: start: 20211101

REACTIONS (4)
  - Adverse drug reaction [Recovered/Resolved]
  - Skin swelling [Recovered/Resolved]
  - Rash pustular [Recovered/Resolved]
  - Erythema [Recovered/Resolved]

NARRATIVE: CASE EVENT DATE: 20211101
